FAERS Safety Report 4622641-9 (Version None)
Quarter: 2005Q1

REPORT INFORMATION
  Report Type: 
  Country: None (occurrence: None)
  Receive Date: 20050328
  Receipt Date: 20050328
  Transmission Date: 20050727
  Serious: Yes (Other)
  Sender: FDA-Public Use
  Company Number: None

PATIENT
  Age: 24 Year
  Sex: Male

DRUGS (1)
  1. CIPRO [Suspect]
     Indication: FOOD POISONING
     Dosage: 500 MG TID PO 5 DAY PRIOR
     Route: 048

REACTIONS (1)
  - ARTHRALGIA [None]
